FAERS Safety Report 22156777 (Version 1)
Quarter: 2023Q1

REPORT INFORMATION
  Report Type: Spontaneous
  Country: IN (occurrence: IN)
  Receive Date: 20230330
  Receipt Date: 20230330
  Transmission Date: 20230417
  Serious: Yes (Other)
  Sender: FDA-Public Use
  Company Number: IN-PFIZER INC-PV202300057503

PATIENT
  Age: 61 Year
  Sex: Female

DRUGS (1)
  1. AROMASIN [Suspect]
     Active Substance: EXEMESTANE
     Dosage: UNK
     Route: 048

REACTIONS (1)
  - Neuropathy peripheral [Unknown]
